FAERS Safety Report 6139779-X (Version None)
Quarter: 2009Q2

REPORT INFORMATION
  Report Type: 
  Country: None (occurrence: None)
  Receive Date: 20090401
  Receipt Date: 20090324
  Transmission Date: 20091009
  Serious: Yes (Other)
  Sender: FDA-Public Use
  Company Number: A0776427A

PATIENT
  Sex: Male

DRUGS (1)
  1. TYKERB [Suspect]
     Indication: BRAIN NEOPLASM
     Dosage: 500MG TWICE PER DAY
     Route: 048
     Dates: start: 20090201

REACTIONS (1)
  - HEMIPARESIS [None]
